FAERS Safety Report 5863813-5 (Version None)
Quarter: 2008Q3

REPORT INFORMATION
  Report Type: 
  Country: None (occurrence: None)
  Receive Date: 20080827
  Receipt Date: 20080812
  Transmission Date: 20090109
  Serious: Yes (Disabling, Other)
  Sender: FDA-Public Use
  Company Number: US-1167001

PATIENT
  Age: 65 Year
  Sex: Male

DRUGS (1)
  1. BSS [Suspect]
     Dosage: (INTRAOCULAR)
     Route: 031
     Dates: start: 20080617, end: 20080617

REACTIONS (4)
  - BLINDNESS [None]
  - EYE INFECTION INTRAOCULAR [None]
  - POST PROCEDURAL INFECTION [None]
  - PSEUDOMONAS INFECTION [None]
